FAERS Safety Report 20542486 (Version 2)
Quarter: 2022Q2

REPORT INFORMATION
  Report Type: Report from Study
  Country: EC (occurrence: EC)
  Receive Date: 20220302
  Receipt Date: 20220407
  Transmission Date: 20220721
  Serious: Yes (Death, Hospitalization)
  Sender: FDA-Public Use
  Company Number: EC-002147023-NVSC2022EC044086

PATIENT

DRUGS (1)
  1. RUXOLITINIB [Suspect]
     Active Substance: RUXOLITINIB
     Indication: Thrombocytopenia
     Dosage: 15 MG, Q48H
     Route: 048
     Dates: start: 20210923, end: 202112

REACTIONS (5)
  - Death [Fatal]
  - Thrombocytopenia [Unknown]
  - Disease progression [Unknown]
  - Product use in unapproved indication [Unknown]
  - Incorrect dosage administered [Unknown]

NARRATIVE: CASE EVENT DATE: 20210923
